FAERS Safety Report 23243171 (Version 5)
Quarter: 2025Q3

REPORT INFORMATION
  Report Type: Report from Study
  Country: US (occurrence: US)
  Receive Date: 20231130
  Receipt Date: 20250810
  Transmission Date: 20251020
  Serious: Yes (Other)
  Sender: ALEXION PHARMACEUTICALS
  Company Number: US-ALXN-A202215427

PATIENT
  Age: 59 Year
  Sex: Female
  Weight: 51.701 kg

DRUGS (14)
  1. STRENSIQ [Suspect]
     Active Substance: ASFOTASE ALFA
     Indication: Hypophosphatasia
     Dosage: UNK, (2 INJECTIONS)
  2. STRENSIQ [Suspect]
     Active Substance: ASFOTASE ALFA
     Dosage: UNK, TIW
     Route: 065
  3. STRENSIQ [Suspect]
     Active Substance: ASFOTASE ALFA
     Dosage: UNK (TWO INJECTION)
     Route: 065
  4. STRENSIQ [Suspect]
     Active Substance: ASFOTASE ALFA
     Dosage: UNK, Q2W
     Route: 065
  5. STRENSIQ [Suspect]
     Active Substance: ASFOTASE ALFA
     Dosage: UNK, (2 INJECTIONS)
     Route: 065
  6. STRENSIQ [Suspect]
     Active Substance: ASFOTASE ALFA
     Dosage: UNK, QMONTH
     Route: 065
  7. STRENSIQ [Suspect]
     Active Substance: ASFOTASE ALFA
     Dosage: UNK, Q3W
     Route: 065
  8. TREMFYA [Suspect]
     Active Substance: GUSELKUMAB
     Route: 065
  9. ORENCIA [Suspect]
     Active Substance: ABATACEPT
     Indication: Rheumatoid arthritis
  10. ORENCIA [Suspect]
     Active Substance: ABATACEPT
     Indication: Immune system disorder
  11. ORENCIA [Suspect]
     Active Substance: ABATACEPT
     Indication: Psoriatic arthropathy
  12. METHOTREXATE [Concomitant]
     Active Substance: METHOTREXATE
     Dosage: UNK, QD
     Route: 065
  13. PREDNISONE [Concomitant]
     Active Substance: PREDNISONE
     Dosage: UNK, QD
     Route: 065
  14. METHYLPREDNISOLONE [Concomitant]
     Active Substance: METHYLPREDNISOLONE
     Indication: Inflammation
     Route: 065

REACTIONS (17)
  - Rheumatoid arthritis [Unknown]
  - Colitis [Unknown]
  - Psoriatic arthropathy [Unknown]
  - Autoimmune disorder [Unknown]
  - Emotional distress [Unknown]
  - COVID-19 [Recovered/Resolved]
  - Osteoporosis [Unknown]
  - Influenza [Recovered/Resolved]
  - Weight decreased [Unknown]
  - Off label use [Unknown]
  - Gastrointestinal disorder [Unknown]
  - Ligament sprain [Unknown]
  - Injection site pain [Unknown]
  - Gait disturbance [Recovering/Resolving]
  - Bone density decreased [Unknown]
  - Gait inability [Unknown]
  - Pain [Unknown]

NARRATIVE: CASE EVENT DATE: 20220101
